FAERS Safety Report 4289467-X (Version None)
Quarter: 2004Q1

REPORT INFORMATION
  Report Type: 
  Country: None (occurrence: None)
  Receive Date: 20040206
  Receipt Date: 20040128
  Transmission Date: 20041129
  Serious: Yes (Hospitalization, Other)
  Sender: FDA-Public Use
  Company Number: NSADSS2002016927

PATIENT
  Age: 32 Year
  Sex: Female
  Weight: 45.3597 kg

DRUGS (16)
  1. REMICADE [Suspect]
     Indication: CROHN'S DISEASE
     Dosage: 1 IN 1 AS NECESSARY, INTRAVENOUS DRIP
     Route: 041
     Dates: start: 20020403, end: 20020403
  2. MERCAPTOPURINE [Concomitant]
  3. PENTASA [Concomitant]
  4. CANASA (MESALAZINE) [Concomitant]
  5. DICYCLOMINE HYDROCHLORIDE (DICYCLOVERINE HYDROCHLORIDE) [Concomitant]
  6. FLAGYL [Concomitant]
  7. PREDNISONE [Concomitant]
  8. FOLIC ACID [Concomitant]
  9. B12 (CYANOCOBALAMIN) [Concomitant]
  10. CIPRO [Concomitant]
  11. VICODIN [Concomitant]
  12. PROCRIT (ERYTHROPOIETIN) [Concomitant]
  13. FLAGYL [Concomitant]
  14. LEVAQUIN [Concomitant]
  15. ENTOCORT (BUDESONIDE) [Concomitant]
  16. COLAZAL (BALSALAZIDE SODIUM) [Concomitant]

REACTIONS (21)
  - ANXIETY [None]
  - ARTHRALGIA [None]
  - BLOOD IRON DECREASED [None]
  - CHEST DISCOMFORT [None]
  - CONDITION AGGRAVATED [None]
  - CONTUSION [None]
  - COOMBS DIRECT TEST POSITIVE [None]
  - CROHN'S DISEASE [None]
  - DIPLOPIA [None]
  - DIZZINESS [None]
  - DRUG INEFFECTIVE [None]
  - GASTROINTESTINAL HAEMORRHAGE [None]
  - HAEMOLYSIS [None]
  - HAEMOLYTIC ANAEMIA [None]
  - LETHARGY [None]
  - MARROW HYPERPLASIA [None]
  - MEMORY IMPAIRMENT [None]
  - PIGMENTATION DISORDER [None]
  - RED BLOOD CELL COUNT INCREASED [None]
  - TEMPERATURE INTOLERANCE [None]
  - VISION BLURRED [None]
